FAERS Safety Report 19558034 (Version 3)
Quarter: 2022Q2

REPORT INFORMATION
  Report Type: Report from Study
  Country: ZA (occurrence: ZA)
  Receive Date: 20210715
  Receipt Date: 20220607
  Transmission Date: 20220720
  Serious: Yes (Disabling, Other)
  Sender: FDA-Public Use
  Company Number: ZA-SA-SAC20210211000365

PATIENT
  Age: 42 Year
  Sex: Male

DRUGS (1)
  1. TERIFLUNOMIDE [Suspect]
     Active Substance: TERIFLUNOMIDE
     Indication: Relapsing-remitting multiple sclerosis
     Dosage: 14 MG, QD
     Route: 048
     Dates: start: 20210112

REACTIONS (6)
  - Expanded disability status scale score increased [Unknown]
  - Fatigue [Recovered/Resolved]
  - Alopecia [Recovering/Resolving]
  - Lethargy [Not Recovered/Not Resolved]
  - Condition aggravated [Not Recovered/Not Resolved]
  - Terminal insomnia [Recovering/Resolving]

NARRATIVE: CASE EVENT DATE: 20210101
